FAERS Safety Report 7796374-4 (Version None)
Quarter: 2011Q4

REPORT INFORMATION
  Report Type: 
  Country: None (occurrence: None)
  Receive Date: 20111005
  Receipt Date: 20110927
  Transmission Date: 20120403
  Serious: Yes (Hospitalization, Other)
  Sender: FDA-Public Use
  Company Number: BR-BIOGENIDEC-2011BI037274

PATIENT
  Age: 47 Year
  Sex: Female
  Weight: 62 kg

DRUGS (2)
  1. AVONEX [Suspect]
     Indication: MULTIPLE SCLEROSIS
     Route: 030
     Dates: start: 20060101, end: 20110502
  2. AVONEX [Suspect]
     Route: 030
     Dates: start: 20110101, end: 20110601

REACTIONS (9)
  - PYREXIA [None]
  - POST PROCEDURAL COMPLICATION [None]
  - ARTHRALGIA [None]
  - NEPHROLITHIASIS [None]
  - RENAL CYST [None]
  - URINARY TRACT INFECTION [None]
  - OPERATIVE HAEMORRHAGE [None]
  - RENAL COLIC [None]
  - PAIN [None]
